FAERS Safety Report 13010351 (Version 1)
Quarter: 2016Q4

REPORT INFORMATION
  Report Type: Report from Study
  Country: None (occurrence: GB)
  Receive Date: 20161208
  Receipt Date: 20161208
  Transmission Date: 20170207
  Serious: Yes (Hospitalization, Other)
  Sender: FDA-Public Use
  Company Number: GB-ABBVIE-16P-167-1800240-00

PATIENT
  Age: 67 Year
  Sex: Male
  Weight: 108.8 kg

DRUGS (6)
  1. WARFARIN [Concomitant]
     Active Substance: WARFARIN
     Indication: PRODUCT USED FOR UNKNOWN INDICATION
     Dates: start: 20160101, end: 20160601
  2. FOLIC ACID. [Concomitant]
     Active Substance: FOLIC ACID
     Indication: PRODUCT USED FOR UNKNOWN INDICATION
     Dates: start: 20130601
  3. CICLOSPORIN [Concomitant]
     Active Substance: CYCLOSPORINE
     Indication: PRODUCT USED FOR UNKNOWN INDICATION
     Dates: start: 20090205
  4. VITAMIN B12 [Concomitant]
     Active Substance: CYANOCOBALAMIN
     Indication: PRODUCT USED FOR UNKNOWN INDICATION
     Dates: start: 20130501
  5. HUMIRA [Suspect]
     Active Substance: ADALIMUMAB
     Indication: PSORIASIS
     Route: 058
     Dates: start: 20121016
  6. BOTOX [Concomitant]
     Active Substance: ONABOTULINUMTOXINA
     Indication: BLEPHAROSPASM
     Dates: start: 2007

REACTIONS (3)
  - Pulmonary embolism [Recovered/Resolved]
  - Hypertension [Unknown]
  - Posterior capsule opacification [Unknown]

NARRATIVE: CASE EVENT DATE: 2012
